FAERS Safety Report 11537138 (Version 1)
Quarter: 2015Q3

REPORT INFORMATION
  Report Type: Spontaneous
  Country: PL (occurrence: PL)
  Receive Date: 20150922
  Receipt Date: 20150922
  Transmission Date: 20151125
  Serious: Yes (Other)
  Sender: FDA-Public Use
  Company Number: PHHY2015PL111645

PATIENT
  Age: 3 Year
  Sex: Female
  Weight: 14.1 kg

DRUGS (2)
  1. TARTRIAKSON [Suspect]
     Active Substance: CEFTRIAXONE SODIUM
     Indication: PNEUMONIA
     Dosage: 1200 MG, UNK
     Route: 065
     Dates: start: 20150325, end: 20150405
  2. CEFTRIAXONE. [Suspect]
     Active Substance: CEFTRIAXONE
     Indication: PNEUMONIA
     Dosage: 1200 MG, UNK
     Route: 065
     Dates: start: 20150406, end: 20150407

REACTIONS (5)
  - Leukopenia [Recovered/Resolved]
  - Anxiety [Recovered/Resolved]
  - Alanine aminotransferase increased [Recovered/Resolved]
  - Pruritus [Recovered/Resolved]
  - Cholelithiasis [Recovered/Resolved]

NARRATIVE: CASE EVENT DATE: 20150401
